FAERS Safety Report 9783119 (Version 1)
Quarter: 2013Q4

REPORT INFORMATION
  Report Type: Spontaneous
  Country: US (occurrence: None)
  Receive Date: 20131223
  Receipt Date: 20131223
  Transmission Date: 20140711
  Serious: Yes (Other)
  Sender: FDA-Public Use
  Company Number: EUS-2011-00788

PATIENT
  Age: 14 Year
  Sex: Female

DRUGS (23)
  1. ERWINASE [Suspect]
     Indication: ACUTE LYMPHOCYTIC LEUKAEMIA
     Route: 030
     Dates: start: 20111028, end: 20111028
  2. BACTRIM (SULFAMETHOXAZOLE) [Concomitant]
  3. KYTRIL (GRANISETRON) [Concomitant]
  4. PEPCID (FAMOTIDINE) [Concomitant]
  5. MERCAPTOPURINE [Concomitant]
  6. SALT AND SODA (SODIUM CHLORIDE) [Concomitant]
  7. DIPHENHYDRAMINE [Concomitant]
  8. DEXAMETHASONE [Concomitant]
  9. VINCRISTINE [Concomitant]
  10. SODIUM CHLORIDE [Concomitant]
  11. DOXORUBICIN [Concomitant]
  12. LUPRON (LEUPRORELIN ACETATE) [Concomitant]
  13. METHOTREXATE [Concomitant]
  14. CYCLOPHOSPHAMIDE [Concomitant]
  15. CYTARABINE [Concomitant]
  16. THIOGUANINE [Concomitant]
  17. PACKED RBCIS (RED BLOOD CELLS) [Concomitant]
  18. GRANISETRON [Concomitant]
  19. ACETAMINOPHEN (PARACETAMOL) [Concomitant]
  20. LORAZEPAM [Concomitant]
  21. ONDANSETRON HCL (ONDANSETRON HYDROCHLORIDE) [Concomitant]
  22. PROMETHAZINE [Concomitant]
  23. DEXAMETHASONE [Concomitant]

REACTIONS (4)
  - Nausea [None]
  - Vomiting [None]
  - Fatigue [None]
  - Flushing [None]
